FAERS Safety Report 9264764 (Version 1)
Quarter: 2013Q2

REPORT INFORMATION
  Report Type: Spontaneous
  Country: US (occurrence: None)
  Receive Date: 20130429
  Receipt Date: 20130429
  Transmission Date: 20140414
  Serious: Yes (Other)
  Sender: FDA-Public Use
  Company Number: None

PATIENT
  Age: 1 Month
  Sex: Male
  Weight: 3.3 kg

DRUGS (2)
  1. ERYTHROMYCIN [Suspect]
     Indication: CONJUNCTIVITIS CHLAMYDIAL
     Dates: start: 20130309, end: 20130323
  2. ERYTHROMYCIN [Suspect]
     Dates: start: 20130309, end: 20130323

REACTIONS (2)
  - Surgery [None]
  - Pyloric stenosis [None]
